FAERS Safety Report 6666602-7 (Version None)
Quarter: 2010Q2

REPORT INFORMATION
  Report Type: 
  Country: None (occurrence: None)
  Receive Date: 20100404
  Receipt Date: 20100322
  Transmission Date: 20101027
  Serious: Yes (Other)
  Sender: FDA-Public Use
  Company Number: ZA-BRISTOL-MYERS SQUIBB COMPANY-15046014

PATIENT
  Age: 28 Year
  Sex: Male

DRUGS (2)
  1. DASATINIB [Suspect]
     Indication: CHRONIC MYELOID LEUKAEMIA
  2. NON-MEDICINAL PRODUCT [Interacting]

REACTIONS (4)
  - FOOD INTERACTION [None]
  - HEADACHE [None]
  - OEDEMA PERIPHERAL [None]
  - VASODILATATION [None]
